FAERS Safety Report 10247376 (Version 1)
Quarter: 2014Q2

REPORT INFORMATION
  Report Type: Spontaneous
  Country: US (occurrence: US)
  Receive Date: 20140619
  Receipt Date: 20140619
  Transmission Date: 20141212
  Serious: No
  Sender: FDA-Public Use
  Company Number: US-B.I. PHARMACEUTICALS,INC./RIDGEFIELD-2014-BI-26257BP

PATIENT
  Sex: Male
  Weight: 86 kg

DRUGS (6)
  1. SPIRIVA [Suspect]
     Indication: CHRONIC OBSTRUCTIVE PULMONARY DISEASE
     Dosage: 18 MCG
     Route: 055
     Dates: start: 2012
  2. SYMBICORT [Concomitant]
     Indication: CHRONIC OBSTRUCTIVE PULMONARY DISEASE
     Dosage: STRENGTH: 160MCG/4.5MCG; DAILY DOSE: 320MCG/9MCG
     Route: 055
     Dates: start: 2011
  3. TRAMADOL [Concomitant]
     Indication: ARTHRITIS
     Dosage: 100 MG
     Route: 048
     Dates: start: 2012
  4. LISINOPRIL/HYDROCHLOROTHIAZIDE [Concomitant]
     Indication: HYPERTENSION
     Dosage: STRENGTH: 10MG/12.5MG; DAILY DOSE: 10MG/12.5MG
     Route: 048
  5. VENTOLIN [Concomitant]
     Indication: CHRONIC OBSTRUCTIVE PULMONARY DISEASE
     Route: 055
  6. ASPIRIN [Concomitant]
     Indication: CARDIOVASCULAR DISORDER
     Dosage: 81 MG
     Route: 048

REACTIONS (3)
  - Eye infection [Recovered/Resolved]
  - Cataract [Not Recovered/Not Resolved]
  - Abnormal loss of weight [Not Recovered/Not Resolved]
